FAERS Safety Report 13937987 (Version 6)
Quarter: 2019Q2

REPORT INFORMATION
  Report Type: Spontaneous
  Country: US (occurrence: US)
  Receive Date: 20170905
  Receipt Date: 20190405
  Transmission Date: 20190711
  Serious: Yes (Hospitalization, Other)
  Sender: FDA-Public Use
  Company Number: US-DSJP-DSU-2017-134985

PATIENT

DRUGS (4)
  1. BENICAR [Suspect]
     Active Substance: OLMESARTAN MEDOXOMIL
     Indication: HYPERTENSION
     Dosage: 20 MG, QD
     Route: 048
     Dates: start: 20050929, end: 20080320
  2. BENICAR HCT [Suspect]
     Active Substance: HYDROCHLOROTHIAZIDE\OLMESARTAN MEDOXOMIL
     Indication: HYPERTENSION
     Dosage: 40/25 MG 1/2 TABLET, QD
  3. BENICAR [Suspect]
     Active Substance: OLMESARTAN MEDOXOMIL
     Dosage: 40 MG, QD
     Route: 048
     Dates: start: 20080320, end: 20140520
  4. BENICAR [Suspect]
     Active Substance: OLMESARTAN MEDOXOMIL
     Dosage: 40MG ONE FOURTH TABLET , QD
     Route: 048

REACTIONS (8)
  - Colitis ulcerative [Recovering/Resolving]
  - Hypotension [Recovered/Resolved]
  - Acute kidney injury [Recovering/Resolving]
  - Sprue-like enteropathy [Recovering/Resolving]
  - Dizziness [Unknown]
  - Product administration error [Unknown]
  - Clostridium difficile colitis [Recovered/Resolved]
  - Rectal polyp [Recovered/Resolved]

NARRATIVE: CASE EVENT DATE: 20060322
